FAERS Safety Report 24654048 (Version 1)
Quarter: 2024Q4

REPORT INFORMATION
  Report Type: Spontaneous
  Country: GB (occurrence: GB)
  Receive Date: 20241122
  Receipt Date: 20241122
  Transmission Date: 20250114
  Serious: Yes (Other)
  Sender: ELI LILLY AND COMPANY
  Company Number: GB-MHRA-TPP4342242C8860627YC1731343877972

PATIENT
  Age: 76 Year
  Sex: Female
  Weight: 108 kg

DRUGS (8)
  1. MOUNJARO [Suspect]
     Active Substance: TIRZEPATIDE
     Indication: Ill-defined disorder
     Dosage: UNK UNK, UNKNOWN
     Route: 065
     Dates: start: 20241111
  2. BENDROFLUMETHIAZIDE [Concomitant]
     Active Substance: BENDROFLUMETHIAZIDE
     Indication: Ill-defined disorder
     Dosage: 1 DOSAGE FORM, EACH MORNING
     Route: 048
     Dates: start: 20230822
  3. BECLOMETHASONE DIPROPIONATE [Concomitant]
     Active Substance: BECLOMETHASONE DIPROPIONATE
     Indication: Ill-defined disorder
     Dosage: 1 DOSAGE FORM, OTHER(EVERY 12 HOUR)
     Route: 048
     Dates: start: 20230822, end: 20241011
  4. LISINOPRIL [Concomitant]
     Active Substance: LISINOPRIL
     Indication: Ill-defined disorder
     Dosage: 1 DOSAGE FORM, DAILY
     Route: 048
     Dates: start: 20230822
  5. OZEMPIC [Concomitant]
     Active Substance: SEMAGLUTIDE
     Indication: Ill-defined disorder
     Dosage: 1 DOSAGE FORM, WEEKLY (1/W)
     Dates: start: 20230822, end: 20240830
  6. ALBUTEROL [Concomitant]
     Active Substance: ALBUTEROL
     Indication: Ill-defined disorder
     Dosage: ONE OR TWO PUFFS UP TO FOUR TIMES A DAY
     Route: 055
     Dates: start: 20230822
  7. DAPAGLIFLOZIN [Concomitant]
     Active Substance: DAPAGLIFLOZIN
     Indication: Ill-defined disorder
     Dosage: 1 DOSAGE FORM, DAILY
     Route: 048
     Dates: start: 20240326, end: 20240830
  8. QVAR [Concomitant]
     Active Substance: BECLOMETHASONE DIPROPIONATE
     Indication: Ill-defined disorder
     Dosage: 2 DOSAGE FORM, OTHER (EVERY 12 HOUR)
     Route: 055
     Dates: start: 20241011

REACTIONS (2)
  - Alopecia [Unknown]
  - Off label use [Unknown]

NARRATIVE: CASE EVENT DATE: 20241111
